FAERS Safety Report 9815320 (Version 1)
Quarter: 2014Q1

REPORT INFORMATION
  Report Type: Spontaneous
  Country: US (occurrence: US)
  Receive Date: 20140114
  Receipt Date: 20140114
  Transmission Date: 20141002
  Serious: Yes (Other)
  Sender: FDA-Public Use
  Company Number: PHHY2014US001726

PATIENT
  Age: 69 Year
  Sex: Male

DRUGS (2)
  1. ACETYLSALICYLIC ACID [Suspect]
  2. IBUPROFEN [Suspect]

REACTIONS (5)
  - Throat tightness [Unknown]
  - Rhinorrhoea [Unknown]
  - Sneezing [Unknown]
  - Vomiting [Unknown]
  - Dyspnoea [Unknown]
